FAERS Safety Report 8331938-0 (Version None)
Quarter: 2012Q2

REPORT INFORMATION
  Report Type: 
  Country: None (occurrence: None)
  Receive Date: 20120502
  Receipt Date: 20120420
  Transmission Date: 20120825
  Serious: Yes (Death, Hospitalization)
  Sender: FDA-Public Use
  Company Number: US-ELI_LILLY_AND_COMPANY-US201111006240

PATIENT
  Sex: Female
  Weight: 45.4 kg

DRUGS (12)
  1. FORTEO [Suspect]
     Dosage: 20 UG, QD
     Route: 058
     Dates: end: 20120122
  2. OXYCODONE HCL [Concomitant]
     Dosage: 5 MG, PRN
  3. PERCOCET [Concomitant]
     Dosage: UNK, PRN
  4. NORVASC [Concomitant]
     Dosage: 5 MG, QD
     Route: 048
  5. MULTI-VITAMIN [Concomitant]
     Dosage: UNK, QD
  6. CALCIUM [Concomitant]
     Dosage: 600 MG, UNK
  7. FLEXERIL [Concomitant]
     Dosage: 10 MG, TID
  8. NATURAL TEARS [Concomitant]
     Dosage: UNK, PRN
  9. VITAMIN D [Concomitant]
     Dosage: 1000 IU, QD
  10. ZOFRAN [Concomitant]
     Dosage: 4 MG, UNK
  11. FORTEO [Suspect]
     Indication: OSTEOPOROSIS
     Dosage: 20 UG, QD
     Route: 058
     Dates: start: 20111103
  12. CELEXA [Concomitant]
     Dosage: 20 MG, EACH MORNING

REACTIONS (3)
  - SMALL INTESTINAL OBSTRUCTION [None]
  - NAUSEA [None]
  - PNEUMONIA [None]
